FAERS Safety Report 5924203-X (Version None)
Quarter: 2008Q4

REPORT INFORMATION
  Report Type: 
  Country: None (occurrence: None)
  Receive Date: 20081020
  Receipt Date: 20081009
  Transmission Date: 20090506
  Serious: Yes (Other)
  Sender: FDA-Public Use
  Company Number: FR-JNJCH-2008051728

PATIENT
  Age: 44 Year
  Sex: Male

DRUGS (1)
  1. MINOXIDIL [Suspect]
     Indication: ALOPECIA
     Dosage: TEXT:UNSPECIFIED ONCE DAILY
     Route: 061

REACTIONS (1)
  - ERECTILE DYSFUNCTION [None]
